FAERS Safety Report 6246949-9 (Version None)
Quarter: 2009Q2

REPORT INFORMATION
  Report Type: 
  Country: None (occurrence: None)
  Receive Date: 20090626
  Receipt Date: 20090616
  Transmission Date: 20091009
  Serious: Yes (Hospitalization, Other)
  Sender: FDA-Public Use
  Company Number: US-AMGEN-QUU351868

PATIENT
  Sex: Male

DRUGS (1)
  1. ENBREL [Suspect]
     Indication: PSORIASIS

REACTIONS (5)
  - COCCIDIOIDOMYCOSIS [None]
  - INFECTION [None]
  - NASOPHARYNGITIS [None]
  - NON-CARDIAC CHEST PAIN [None]
  - PULMONARY THROMBOSIS [None]
